FAERS Safety Report 13613520 (Version 1)
Quarter: 2017Q2

REPORT INFORMATION
  Report Type: Spontaneous
  Country: US (occurrence: US)
  Receive Date: 20170605
  Receipt Date: 20170605
  Transmission Date: 20170830
  Serious: Yes (Other)
  Sender: FDA-Public Use
  Company Number: US-CELGENEUS-USA-20170509625

PATIENT

DRUGS (1)
  1. POMALYST [Suspect]
     Active Substance: POMALIDOMIDE
     Indication: PLASMA CELL MYELOMA
     Dosage: 3-4 MG
     Route: 048

REACTIONS (4)
  - Hypomania [Unknown]
  - Leukopenia [Unknown]
  - Plasma cell myeloma [Unknown]
  - Neutropenia [Unknown]
